FAERS Safety Report 6245372-0 (Version None)
Quarter: 2009Q2

REPORT INFORMATION
  Report Type: 
  Country: None (occurrence: None)
  Receive Date: 20090625
  Receipt Date: 20090619
  Transmission Date: 20091009
  Serious: Yes (Death, Other)
  Sender: FDA-Public Use
  Company Number: CN-ROXANE LABORATORIES, INC.-2009-RO-00598RO

PATIENT
  Age: 40 Year
  Sex: Male

DRUGS (2)
  1. METHOTREXATE [Suspect]
     Indication: PSORIASIS
     Dosage: 15 MG
     Route: 042
     Dates: start: 20070501
  2. METHYLPREDNISOLONE [Suspect]
     Indication: ERYTHEMA MULTIFORME
     Dosage: 40 MG
     Route: 042

REACTIONS (7)
  - CLONUS [None]
  - CONFUSIONAL STATE [None]
  - DEATH [None]
  - ERYTHEMA MULTIFORME [None]
  - GINGIVAL BLEEDING [None]
  - HAEMOPTYSIS [None]
  - MELAENA [None]
